FAERS Safety Report 12549308 (Version 5)
Quarter: 2017Q2

REPORT INFORMATION
  Report Type: Other
  Country: CA (occurrence: CA)
  Receive Date: 20160712
  Receipt Date: 20170519
  Transmission Date: 20170830
  Serious: Yes (Hospitalization, Other)
  Sender: FDA-Public Use
  Company Number: CA-SHIRE-CA201608102

PATIENT
  Age: 62 Year
  Sex: Female

DRUGS (14)
  1. REVESTIVE [Suspect]
     Active Substance: TEDUGLUTIDE
     Indication: SHORT-BOWEL SYNDROME
     Dosage: 3.1 MG, 1X/DAY:QD
     Route: 058
     Dates: start: 20160622, end: 20160626
  2. LOVENOX [Concomitant]
     Active Substance: ENOXAPARIN SODIUM
     Indication: PROCOAGULANT THERAPY
     Dosage: 100 MG, 2X/DAY:BID
     Route: 058
  3. VITA                               /00056102/ [Concomitant]
     Indication: PRODUCT USED FOR UNKNOWN INDICATION
     Dosage: 12 IN TPN, 1X/DAY:QD
     Route: 042
  4. REVESTIVE [Suspect]
     Active Substance: TEDUGLUTIDE
     Dosage: 3.2 MG, UNKNOWN
     Route: 058
  5. TPN [Concomitant]
     Active Substance: AMINO ACIDS\DEXTROSE\ELECTROLYTES NOS\SOYBEAN OIL
     Indication: PRODUCT USED FOR UNKNOWN INDICATION
     Dosage: 2160 ML OVER 12 HOURS, 1X/DAY:QD (EVERY NIGHT VIA PICC)
     Route: 042
  6. GRAVOL [Concomitant]
     Active Substance: DIMENHYDRINATE
     Indication: PRODUCT USED FOR UNKNOWN INDICATION
     Dosage: UNK, EVERY 4 HOURS, AS REQ^D (TAKEN APPROX 2 X DAILY)
     Route: 042
  7. VITAMIN B12 [Concomitant]
     Active Substance: CYANOCOBALAMIN
     Indication: PRODUCT USED FOR UNKNOWN INDICATION
     Dosage: UNK, OTHER (MONTHLY)
     Route: 030
  8. XYLOCAINE [Concomitant]
     Active Substance: LIDOCAINE HYDROCHLORIDE
     Indication: PRODUCT USED FOR UNKNOWN INDICATION
     Dosage: UNK, UNKNOWN
     Route: 048
  9. REVESTIVE [Suspect]
     Active Substance: TEDUGLUTIDE
     Dosage: 3.1 MG, 1X/DAY:QD
     Route: 058
  10. REVESTIVE [Suspect]
     Active Substance: TEDUGLUTIDE
     Dosage: 2.35 MG, UNKNOWN
     Route: 058
     Dates: start: 20160814, end: 20160822
  11. CYCLOBENZAPRINE. [Concomitant]
     Active Substance: CYCLOBENZAPRINE
     Indication: PRODUCT USED FOR UNKNOWN INDICATION
     Dosage: 10 MG, 3 TIMES A DAY/TID WITH FOOD, AS REQ^D
     Route: 048
  12. NABILONE [Concomitant]
     Active Substance: NABILONE
     Indication: PRODUCT USED FOR UNKNOWN INDICATION
     Dosage: 2 MG, 2X/DAY:BID
     Route: 048
  13. HYDROMORPHONE [Concomitant]
     Active Substance: HYDROMORPHONE
     Indication: PRODUCT USED FOR UNKNOWN INDICATION
     Dosage: 8 MG, 3VERY 3 HOURS AS REQ^D (TAKEN EVERY 4 HOURS)
     Route: 065
  14. LIDOCAINE. [Concomitant]
     Active Substance: LIDOCAINE
     Indication: PRODUCT USED FOR UNKNOWN INDICATION
     Dosage: UNK, AS REQ^D
     Route: 061

REACTIONS (36)
  - Swelling face [Not Recovered/Not Resolved]
  - Spinal compression fracture [Unknown]
  - Paraesthesia oral [Not Recovered/Not Resolved]
  - Skin discomfort [Unknown]
  - Dumping syndrome [Unknown]
  - Dysphagia [Unknown]
  - Pharyngeal oedema [Unknown]
  - Stoma complication [Not Recovered/Not Resolved]
  - Drug dose omission [Unknown]
  - Oral pain [Unknown]
  - Micturition urgency [Unknown]
  - Weight decreased [Unknown]
  - Haemoglobin abnormal [Unknown]
  - Serum ferritin decreased [Unknown]
  - Lip disorder [Unknown]
  - Arthralgia [Unknown]
  - Body temperature increased [Unknown]
  - Peripheral swelling [Not Recovered/Not Resolved]
  - Nausea [Unknown]
  - Swollen tongue [Recovered/Resolved]
  - Dysuria [Unknown]
  - Abnormal faeces [Unknown]
  - Tearfulness [Unknown]
  - Hypersensitivity [Unknown]
  - Gastrointestinal motility disorder [Unknown]
  - Pallor [Unknown]
  - Drug effect decreased [Unknown]
  - Abdominal distension [Unknown]
  - Glossodynia [Not Recovered/Not Resolved]
  - Joint swelling [Recovered/Resolved]
  - Depressed mood [Unknown]
  - Faecal volume decreased [Unknown]
  - Back pain [Unknown]
  - Intestinal obstruction [Recovered/Resolved]
  - Tongue erythema [Unknown]
  - Faeces discoloured [Unknown]

NARRATIVE: CASE EVENT DATE: 2016
